FAERS Safety Report 7023096-X (Version None)
Quarter: 2010Q3

REPORT INFORMATION
  Report Type: 
  Country: None (occurrence: None)
  Receive Date: 20100930
  Receipt Date: 20100916
  Transmission Date: 20110219
  Serious: Yes (Other)
  Sender: FDA-Public Use
  Company Number: PHEH2009US07521

PATIENT
  Sex: Female

DRUGS (9)
  1. ZOMETA [Suspect]
  2. MULTI-VITAMINS [Concomitant]
  3. NEXIUM [Concomitant]
  4. MUCINEX [Concomitant]
  5. LEVOTHYROXINE SODIUM [Concomitant]
  6. PREMARIN [Concomitant]
  7. CALTRATE [Concomitant]
  8. ADVAIR DISKUS 100/50 [Concomitant]
  9. CHLORHEXIDINE GLUCONATE [Suspect]

REACTIONS (11)
  - ANXIETY [None]
  - CARDIAC VALVE DISEASE [None]
  - COUGH [None]
  - DECREASED INTEREST [None]
  - GASTROOESOPHAGEAL REFLUX DISEASE [None]
  - HYPOTHYROIDISM [None]
  - INJURY [None]
  - OSTEOARTHRITIS [None]
  - OSTEONECROSIS OF JAW [None]
  - PAIN [None]
  - PERIODONTITIS [None]
